FAERS Safety Report 18221365 (Version 1)
Quarter: 2020Q3

REPORT INFORMATION
  Report Type: Spontaneous
  Country: US (occurrence: US)
  Receive Date: 20200831
  Receipt Date: 20200831
  Transmission Date: 20201103
  Serious: Yes (Other)
  Sender: FDA-Public Use
  Company Number: None

PATIENT
  Age: 48 Year
  Sex: Female
  Weight: 81 kg

DRUGS (1)
  1. ART NATURALS UNSCENTED [Suspect]
     Active Substance: ALCOHOL
     Indication: INFECTION PROPHYLAXIS
     Route: 061
     Dates: start: 20200828, end: 20200828

REACTIONS (3)
  - Skin burning sensation [None]
  - Dermatitis [None]
  - Rash erythematous [None]

NARRATIVE: CASE EVENT DATE: 20200828
